FAERS Safety Report 24549032 (Version 2)
Quarter: 2024Q4

REPORT INFORMATION
  Report Type: Spontaneous
  Country: IN (occurrence: IN)
  Receive Date: 20241025
  Receipt Date: 20241107
  Transmission Date: 20250115
  Serious: Yes (Other)
  Sender: RANBAXY
  Company Number: IN-SUN PHARMACEUTICAL INDUSTRIES LTD-2024R1-475376

PATIENT
  Age: 31 Year
  Sex: Female

DRUGS (1)
  1. NAPROXEN [Suspect]
     Active Substance: NAPROXEN
     Indication: Still^s disease
     Dosage: 500 MILLIGRAM, BID
     Route: 065

REACTIONS (1)
  - Drug-induced liver injury [Recovered/Resolved]
